FAERS Safety Report 10188349 (Version 1)
Quarter: 2014Q2

REPORT INFORMATION
  Report Type: Spontaneous
  Country: US (occurrence: None)
  Receive Date: 20140521
  Receipt Date: 20140521
  Transmission Date: 20141212
  Serious: Yes (Hospitalization)
  Sender: FDA-Public Use
  Company Number: None

PATIENT
  Age: 49 Year
  Sex: Female
  Weight: 96.62 kg

DRUGS (1)
  1. VICTOZA INJECTION [Suspect]
     Indication: BLOOD GLUCOSE INCREASED
     Route: 030
     Dates: start: 20140413, end: 20140426

REACTIONS (3)
  - Vomiting [None]
  - Nausea [None]
  - Pancreatitis [None]
